FAERS Safety Report 8529954-9 (Version None)
Quarter: 2012Q3

REPORT INFORMATION
  Report Type: 
  Country: None (occurrence: None)
  Receive Date: 20120723
  Receipt Date: 20120712
  Transmission Date: 20120928
  Serious: Yes (Other)
  Sender: FDA-Public Use
  Company Number: PHHY2012PL057589

PATIENT
  Sex: Male
  Weight: 72 kg

DRUGS (18)
  1. MYFORTIC [Suspect]
     Indication: IMMUNOSUPPRESSION
     Dosage: 1440 MG A DAY
  2. STEROIDS NOS [Concomitant]
  3. POLPRAZOL [Concomitant]
     Route: 048
  4. NEORAL [Suspect]
     Indication: RENAL TRANSPLANT
     Dosage: 150 MG AND 200 MG
     Dates: start: 20001215, end: 20070118
  5. AMLOZEK [Concomitant]
     Route: 048
  6. BISOPROLOL FUMARATE [Concomitant]
     Route: 048
  7. MYFORTIC [Suspect]
     Dosage: 360 MG, TID
     Route: 048
     Dates: start: 20111117, end: 20111214
  8. NEORAL [Suspect]
     Dosage: 100 MG, UNK
     Dates: start: 20070119, end: 20071220
  9. OMEPRAZOLE [Concomitant]
     Dosage: 20 MG PER DAY
  10. SIMVASTATIN [Concomitant]
     Route: 048
  11. MYFORTIC [Suspect]
     Indication: RENAL TRANSPLANT
     Dosage: 1080 MG PER DAY
     Dates: start: 20070202, end: 20090312
  12. AZATHIOPRINE [Concomitant]
     Indication: BLOOD CREATININE INCREASED
     Dosage: 50 MG A DAY
     Dates: start: 20001215, end: 20070118
  13. CELLCEPT [Concomitant]
     Dosage: 2 G A DAY
     Dates: start: 20001219, end: 20070201
  14. NEORAL [Suspect]
     Dosage: 75 MG, UNK
     Dates: end: 20110118
  15. PREDNISONE [Concomitant]
     Indication: BLOOD CREATININE INCREASED
     Dosage: 7.5 MG A DAY
     Dates: start: 20001215, end: 20071220
  16. PREDNISONE [Concomitant]
     Dosage: 5 MG A DAY
     Dates: start: 20071221, end: 20111214
  17. IPOREL [Concomitant]
     Route: 048
  18. ANTIHYPERTENSIVE DRUGS [Concomitant]
     Dosage: UNK UKN, UNK

REACTIONS (6)
  - NEUROTOXICITY [None]
  - TOXICITY TO VARIOUS AGENTS [None]
  - BLOOD CREATININE INCREASED [None]
  - SQUAMOUS CELL CARCINOMA [None]
  - ABDOMINAL PAIN [None]
  - NAUSEA [None]
